FAERS Safety Report 17815154 (Version 4)
Quarter: 2020Q2

REPORT INFORMATION
  Report Type: Spontaneous
  Country: US (occurrence: US)
  Receive Date: 20200522
  Receipt Date: 20200629
  Transmission Date: 20200714
  Serious: No
  Sender: FDA-Public Use
  Company Number: US-BIOGEN-2020BI00876328

PATIENT
  Age: 67 Year
  Sex: Female

DRUGS (3)
  1. TECFIDERA [Suspect]
     Active Substance: DIMETHYL FUMARATE
     Route: 048
     Dates: start: 20200522
  2. TECFIDERA [Suspect]
     Active Substance: DIMETHYL FUMARATE
     Indication: MULTIPLE SCLEROSIS
     Dosage: FIRST PILL IN MORNING?FOR 7 DAYS
     Route: 065
     Dates: start: 20200515
  3. DULOXETINE. [Concomitant]
     Active Substance: DULOXETINE
     Indication: PAIN
     Route: 065

REACTIONS (4)
  - Flatulence [Unknown]
  - Flushing [Unknown]
  - Facial pain [Unknown]
  - Fatigue [Unknown]

NARRATIVE: CASE EVENT DATE: 202005
